FAERS Safety Report 6160365-X (Version None)
Quarter: 2009Q2

REPORT INFORMATION
  Report Type: 
  Country: None (occurrence: None)
  Receive Date: 20090420
  Receipt Date: 20090415
  Transmission Date: 20091009
  Serious: No
  Sender: FDA-Public Use
  Company Number: US-JNJFOC-20090206678

PATIENT
  Sex: Female
  Weight: 43.09 kg

DRUGS (6)
  1. DURAGESIC-100 [Suspect]
     Indication: PAIN
     Route: 062
  2. OXYCONTIN [Concomitant]
     Dosage: 12 IN 24 HOURS AS NEEDED
     Route: 048
  3. OXYCONTIN [Concomitant]
     Indication: PAIN
     Route: 048
  4. METHADONE HCL [Concomitant]
     Indication: PAIN
     Route: 048
  5. DILAUDID [Concomitant]
     Indication: PAIN
     Dosage: 8 IN 24 HOURS AS NEEDED
     Route: 048
  6. RESTORIL [Concomitant]
     Indication: SLEEP DISORDER
     Dosage: AT BED TIME
     Route: 048

REACTIONS (1)
  - INAPPROPRIATE SCHEDULE OF DRUG ADMINISTRATION [None]
